FAERS Safety Report 4506672-5 (Version None)
Quarter: 2004Q4

REPORT INFORMATION
  Report Type: 
  Country: None (occurrence: None)
  Receive Date: 20041122
  Receipt Date: 20030605
  Transmission Date: 20050328
  Serious: Yes (Hospitalization, Other)
  Sender: FDA-Public Use
  Company Number: US-MERCK-0306USA00933

PATIENT
  Age: 66 Year
  Sex: Male
  Weight: 96 kg

DRUGS (23)
  1. VIOXX [Suspect]
     Route: 048
     Dates: end: 20030617
  2. SYNTHROID [Concomitant]
     Route: 048
  3. VITAMINS (UNSPECIFIED) [Concomitant]
     Route: 065
  4. ZOCOR [Concomitant]
     Route: 048
  5. DARVOCET-N 100 [Concomitant]
     Route: 065
  6. ELAVIL [Concomitant]
     Route: 065
     Dates: end: 20010501
  7. ALPRAZOLAM [Concomitant]
     Route: 065
  8. CLARINEX [Concomitant]
     Route: 065
  9. AMBIEN [Concomitant]
     Route: 065
  10. ASPIRIN [Concomitant]
     Route: 065
  11. ZOLOFT [Concomitant]
     Route: 065
  12. [COMPOSITION UNSPECIFIED] [Concomitant]
     Route: 065
  13. PRILOSEC [Concomitant]
     Route: 065
  14. AMITRIPTYLINE HYDROCHLORIDE [Concomitant]
     Route: 065
  15. PAXIL [Concomitant]
     Route: 065
  16. XANAX [Concomitant]
     Route: 048
  17. VICODIN [Concomitant]
     Route: 048
  18. LOMOTIL [Concomitant]
     Route: 048
  19. BACTRIM [Concomitant]
     Route: 065
  20. PHENERGAN TABLETS/SUPPOSITORIES [Concomitant]
     Route: 048
  21. DURATUSS [Concomitant]
     Route: 048
  22. GENTAMICIN SULFATE [Concomitant]
     Route: 047
  23. AMOXIL [Concomitant]
     Route: 048

REACTIONS (29)
  - ACUTE SINUSITIS [None]
  - ANGINA PECTORIS [None]
  - ANXIETY [None]
  - BLOOD CHOLESTEROL INCREASED [None]
  - BRONCHITIS ACUTE [None]
  - CATARACT [None]
  - CONJUNCTIVITIS [None]
  - CONVULSION [None]
  - DEPRESSION [None]
  - DYSPEPSIA [None]
  - ESSENTIAL HYPERTENSION [None]
  - FATIGUE [None]
  - GASTROENTERITIS NONINFECTIOUS [None]
  - HEADACHE [None]
  - HYPOAESTHESIA [None]
  - INSOMNIA [None]
  - INTERVERTEBRAL DISC PROTRUSION [None]
  - JOINT SWELLING [None]
  - LUMBAR SPINAL STENOSIS [None]
  - MALAISE [None]
  - NERVOUSNESS [None]
  - NIGHT CRAMPS [None]
  - OEDEMA PERIPHERAL [None]
  - OTITIS MEDIA ACUTE [None]
  - PARAESTHESIA [None]
  - RETINAL VEIN OCCLUSION [None]
  - TENSION [None]
  - TRANSIENT ISCHAEMIC ATTACK [None]
  - VERTIGO POSITIONAL [None]
